FAERS Safety Report 8432433-0 (Version None)
Quarter: 2012Q2

REPORT INFORMATION
  Report Type: 
  Country: None (occurrence: None)
  Receive Date: 20120613
  Receipt Date: 20120604
  Transmission Date: 20120825
  Serious: Yes (Hospitalization)
  Sender: FDA-Public Use
  Company Number: IT-ELI_LILLY_AND_COMPANY-IT201205002630

PATIENT
  Sex: Male

DRUGS (6)
  1. ALIMTA [Suspect]
     Dosage: 300 MG, OTHER
     Route: 042
     Dates: start: 20110901, end: 20120203
  2. PREDNISOLONE [Concomitant]
     Dosage: 25 MG, UNKNOWN
     Route: 048
     Dates: start: 20120203, end: 20120204
  3. VISUMETAZONE [Concomitant]
     Indication: CONJUNCTIVITIS
     Dosage: UNK, UNKNOWN
     Route: 065
  4. FOLINA [Concomitant]
     Dosage: 1 DF, UNKNOWN
     Route: 065
  5. ALIMTA [Suspect]
     Indication: LUNG ADENOCARCINOMA
     Dosage: 500 MG, OTHER
     Route: 042
     Dates: start: 20110901, end: 20120203
  6. PARACETAMOL+CODEIN [Concomitant]
     Indication: ANALGESIC THERAPY
     Dosage: 3 DF, UNKNOWN
     Route: 065

REACTIONS (1)
  - CEREBRAL ISCHAEMIA [None]
